FAERS Safety Report 12565516 (Version 1)
Quarter: 2016Q3

REPORT INFORMATION
  Report Type: Report from Study
  Country: US (occurrence: US)
  Receive Date: 20160718
  Receipt Date: 20160718
  Transmission Date: 20161109
  Serious: Yes (Hospitalization, Other)
  Sender: FDA-Public Use
  Company Number: US-JNJFOC-20160602383

PATIENT
  Sex: Male

DRUGS (33)
  1. CELLCEPT [Concomitant]
     Active Substance: MYCOPHENOLATE MOFETIL\MYCOPHENOLATE MOFETIL HYDROCHLORIDE
     Route: 048
     Dates: start: 20160422
  2. PRILOSEC [Concomitant]
     Active Substance: OMEPRAZOLE MAGNESIUM
     Route: 048
  3. MAG-OX [Concomitant]
     Active Substance: MAGNESIUM OXIDE
     Route: 048
     Dates: start: 20160110
  4. VITAMIN D3 [Concomitant]
     Active Substance: CHOLECALCIFEROL
     Dosage: 2000 UNIT, QD
     Route: 048
     Dates: start: 20150807
  5. DURAGESIC [Concomitant]
     Active Substance: FENTANYL
     Route: 062
  6. K-DUR [Concomitant]
     Active Substance: POTASSIUM CHLORIDE
     Route: 048
     Dates: start: 20160220
  7. DAPSONE. [Concomitant]
     Active Substance: DAPSONE
  8. DILAUDID [Concomitant]
     Active Substance: HYDROMORPHONE HYDROCHLORIDE
     Dosage: 6 MG, PRN (EVERY 4 HOURS)
     Route: 048
     Dates: start: 20160523
  9. DECADRON [Concomitant]
     Active Substance: DEXAMETHASONE
     Route: 050
     Dates: start: 20160220
  10. DIFLUCAN [Concomitant]
     Active Substance: FLUCONAZOLE
     Route: 048
     Dates: start: 20160523, end: 20160606
  11. FUROSEMIDE. [Concomitant]
     Active Substance: FUROSEMIDE
  12. BARACLUDE [Concomitant]
     Active Substance: ENTECAVIR
     Route: 048
     Dates: start: 20160127
  13. VALTREX [Concomitant]
     Active Substance: VALACYCLOVIR HYDROCHLORIDE
     Route: 048
     Dates: start: 20160425
  14. VITAMIN C WITH BIOFLAVONOIDS [Concomitant]
  15. CARISOPRODOL. [Concomitant]
     Active Substance: CARISOPRODOL
  16. SULFACETAMIDE. [Concomitant]
     Active Substance: SULFACETAMIDE
  17. MAGNESIUM [Concomitant]
     Active Substance: MAGNESIUM
     Route: 048
  18. CALCIUM [Concomitant]
     Active Substance: CALCIUM
     Route: 048
     Dates: start: 20160220
  19. TEMOVATE [Concomitant]
     Active Substance: CLOBETASOL PROPIONATE
     Route: 061
     Dates: start: 20160425
  20. COLACE [Concomitant]
     Active Substance: DOCUSATE SODIUM
     Route: 048
  21. IMBRUVICA [Suspect]
     Active Substance: IBRUTINIB
     Indication: CHRONIC LYMPHOCYTIC LEUKAEMIA
     Route: 048
     Dates: start: 20151207, end: 201603
  22. FENTANYL. [Concomitant]
     Active Substance: FENTANYL
  23. OSCAL [Concomitant]
     Active Substance: CALCIUM CARBONATE
     Dates: start: 20160220
  24. LASIX [Concomitant]
     Active Substance: FUROSEMIDE
     Route: 048
     Dates: start: 20160506
  25. IMBRUVICA [Suspect]
     Active Substance: IBRUTINIB
     Indication: CHRONIC LYMPHOCYTIC LEUKAEMIA
     Route: 048
     Dates: start: 20160304
  26. NYSTATIN. [Concomitant]
     Active Substance: NYSTATIN
  27. CYCLOSPORINE. [Concomitant]
     Active Substance: CYCLOSPORINE
  28. ALPRAZOLAM. [Concomitant]
     Active Substance: ALPRAZOLAM
  29. ENTECAVIR. [Concomitant]
     Active Substance: ENTECAVIR
  30. LANSOPRAZOLE. [Concomitant]
     Active Substance: LANSOPRAZOLE
  31. PREDNISONE. [Concomitant]
     Active Substance: PREDNISONE
  32. ATOVAQUONE. [Concomitant]
     Active Substance: ATOVAQUONE
     Indication: PROPHYLAXIS
     Route: 048
     Dates: start: 20160502
  33. ZOFRAN [Concomitant]
     Active Substance: ONDANSETRON HYDROCHLORIDE
     Dosage: 8 MG PRN(EVERY 8 HOURS)
     Route: 048
     Dates: start: 20160523

REACTIONS (6)
  - Compression fracture [Unknown]
  - Paraneoplastic pemphigus [Unknown]
  - Extra dose administered [Unknown]
  - Vomiting [Unknown]
  - Intervertebral disc degeneration [Unknown]
  - Neutropenia [Unknown]
